FAERS Safety Report 9500600 (Version 1)
Quarter: 2013Q3

REPORT INFORMATION
  Report Type: Spontaneous
  Country: US (occurrence: None)
  Receive Date: 20130904
  Receipt Date: 20130904
  Transmission Date: 20140515
  Serious: Yes (Life-Threatening, Other)
  Sender: FDA-Public Use
  Company Number: None

PATIENT
  Age: 63 Year
  Sex: Male
  Weight: 116.58 kg

DRUGS (23)
  1. LATUDA [Suspect]
     Indication: BIPOLAR DISORDER
     Route: 048
     Dates: start: 20130712, end: 20130728
  2. BIVENT ICD [Concomitant]
  3. LANTUS [Concomitant]
  4. GLIPIZIDE [Concomitant]
  5. JANUVIA [Concomitant]
  6. AMBIEN [Concomitant]
  7. REQUIP [Concomitant]
  8. OMEPRAZOLE [Concomitant]
  9. TRAZADONE [Concomitant]
  10. DEBAKOTE [Concomitant]
  11. BUPROPION [Concomitant]
  12. ZOLOFT [Concomitant]
  13. RISPERDAL [Concomitant]
  14. ATORVASTATIN [Concomitant]
  15. GEMFIBROZIL [Concomitant]
  16. CARVEDILOL [Concomitant]
  17. KCL [Concomitant]
  18. LASIX [Concomitant]
  19. LISINOPRIL [Concomitant]
  20. PERCOCET [Concomitant]
  21. TYLENOL [Concomitant]
  22. DOCUSATE [Concomitant]
  23. ASA [Concomitant]

REACTIONS (5)
  - Dizziness [None]
  - Ventricular tachycardia [None]
  - Ventricular fibrillation [None]
  - Heart rate irregular [None]
  - Blood pressure decreased [None]
